FAERS Safety Report 20101693 (Version 1)
Quarter: 2021Q4

REPORT INFORMATION
  Report Type: Spontaneous
  Country: RU (occurrence: RU)
  Receive Date: 20211123
  Receipt Date: 20211123
  Transmission Date: 20220303
  Serious: Yes (Hospitalization)
  Sender: FDA-Public Use
  Company Number: RU-LUPIN PHARMACEUTICALS INC.-2021-22706

PATIENT
  Age: 12 Year
  Sex: Female

DRUGS (17)
  1. RIFAMPIN [Suspect]
     Active Substance: RIFAMPIN
     Indication: Pulmonary tuberculosis
     Dosage: UNK
     Route: 065
  2. PYRAZINAMIDE [Suspect]
     Active Substance: PYRAZINAMIDE
     Indication: Tuberculosis
     Dosage: AMZELFX REGIMEN
     Route: 065
  3. PYRAZINAMIDE [Suspect]
     Active Substance: PYRAZINAMIDE
     Dosage: ZELFXETO REGIMEN
     Route: 065
  4. ETHAMBUTOL [Suspect]
     Active Substance: ETHAMBUTOL HYDROCHLORIDE
     Indication: Tuberculosis
     Dosage: AMZELFX REGIMEN
     Route: 065
  5. ETHAMBUTOL [Suspect]
     Active Substance: ETHAMBUTOL HYDROCHLORIDE
     Dosage: ZELFXETO REGIMEN
     Route: 065
  6. ETHIONAMIDE [Suspect]
     Active Substance: ETHIONAMIDE
     Indication: Tuberculosis
     Dosage: ZELFXETO REGIMEN
     Route: 065
  7. LEVOFLOXACIN [Suspect]
     Active Substance: LEVOFLOXACIN
     Indication: Tuberculosis
     Dosage: AMZELFX REGIMEN
     Route: 065
  8. LEVOFLOXACIN [Suspect]
     Active Substance: LEVOFLOXACIN
     Dosage: ZELFXETO REGIMEN
     Route: 065
  9. MOXIFLOXACIN [Suspect]
     Active Substance: MOXIFLOXACIN
     Indication: Tuberculosis
     Dosage: UNK
     Route: 065
  10. ISONIAZID [Suspect]
     Active Substance: ISONIAZID
     Indication: Tuberculosis
     Dosage: UNK
     Route: 065
  11. PARA-AMINOSALICYLIC ACID [Suspect]
     Active Substance: AMINOSALICYLIC ACID
     Indication: Tuberculosis
     Dosage: UNK
     Route: 065
  12. AMIKACIN [Concomitant]
     Active Substance: AMIKACIN
     Indication: Tuberculosis
     Dosage: AMZELFX REGIMEN
     Route: 065
  13. AMIKACIN [Concomitant]
     Active Substance: AMIKACIN
     Indication: Pulmonary tuberculosis
     Dosage: AMCSLZDBDQ REGIMEN
     Route: 065
  14. LINEZOLID [Concomitant]
     Active Substance: LINEZOLID
     Indication: Pulmonary tuberculosis
     Dosage: AMCSLZDBDQ REGIMEN
     Route: 065
  15. CYCLOSERINE [Concomitant]
     Active Substance: CYCLOSERINE
     Indication: Pulmonary tuberculosis
     Dosage: AMCSLZDBDQ REGIMEN
     Route: 065
  16. BEDAQUILINE [Concomitant]
     Active Substance: BEDAQUILINE
     Indication: Pulmonary tuberculosis
     Dosage: AMCSLZDBDQ REGIMEN; THREE COURSES OF BEDAQUILINE DUE TO LIFESAVING CONSIDERATIONS
     Route: 065
  17. CAPREOMYCIN [Concomitant]
     Active Substance: CAPREOMYCIN
     Indication: Pulmonary tuberculosis
     Dosage: AMCMCSLZDBDQ
     Route: 065

REACTIONS (1)
  - Multiple-drug resistance [Unknown]
